FAERS Safety Report 26182641 (Version 1)
Quarter: 2025Q4

REPORT INFORMATION
  Report Type: Spontaneous
  Country: US (occurrence: US)
  Receive Date: 20251221
  Receipt Date: 20251221
  Transmission Date: 20260118
  Serious: Yes (Other)
  Sender: SUNOVION
  Company Number: US-SMPA-2025SPA017471

PATIENT
  Age: 78 Year
  Sex: Male

DRUGS (16)
  1. ORGOVYX [Suspect]
     Active Substance: RELUGOLIX
     Indication: Prostate cancer
     Dosage: 360 MG, SINGLE
     Route: 048
  2. ORGOVYX [Suspect]
     Active Substance: RELUGOLIX
     Dosage: 120 MG, QD
     Route: 048
  3. ALBUTEROL [Concomitant]
     Active Substance: ALBUTEROL
  4. ASPIRIN [Concomitant]
     Active Substance: ASPIRIN
  5. ATORVASTATIN [Concomitant]
     Active Substance: ATORVASTATIN
  6. BUDESONIDE [Concomitant]
     Active Substance: BUDESONIDE
  7. DIGOXIN [Concomitant]
     Active Substance: DIGOXIN
  8. FERROUS SULFATE [Concomitant]
     Active Substance: FERROUS SULFATE
  9. LEVALBUTEROL [Concomitant]
     Active Substance: LEVALBUTEROL
  10. LEVOTHYROXINE [Concomitant]
     Active Substance: LEVOTHYROXINE
  11. METOPROLOL [Concomitant]
     Active Substance: METOPROLOL
  12. OXYCODONE [Concomitant]
     Active Substance: OXYCODONE
  13. PREGABALIN [Concomitant]
     Active Substance: PREGABALIN
  14. TAMSULOSIN [Concomitant]
     Active Substance: TAMSULOSIN
  15. TORSEMIDE [Concomitant]
     Active Substance: TORSEMIDE
  16. ZINC [Concomitant]
     Active Substance: ZINC

REACTIONS (2)
  - Pulmonary oedema [Unknown]
  - Product use issue [Unknown]
